FAERS Safety Report 12031292 (Version 1)
Quarter: 2016Q1

REPORT INFORMATION
  Report Type: Report from Study
  Country: US (occurrence: US)
  Receive Date: 20160207
  Receipt Date: 20160207
  Transmission Date: 20160526
  Serious: No
  Sender: FDA-Public Use
  Company Number: US-ABBVIE-15K-163-1507943-00

PATIENT
  Sex: Female
  Weight: 62.65 kg

DRUGS (5)
  1. GABAPENTIN. [Concomitant]
     Active Substance: GABAPENTIN
     Indication: PARAESTHESIA
  2. HUMIRA [Suspect]
     Active Substance: ADALIMUMAB
     Indication: ANKYLOSING SPONDYLITIS
     Dosage: 1 INJECTION EVERY TWO TO THREE WEEKS
     Route: 058
     Dates: start: 201309
  3. SULFASALAZINE. [Concomitant]
     Active Substance: SULFASALAZINE
     Indication: ANKYLOSING SPONDYLITIS
  4. SYNTHROID [Concomitant]
     Active Substance: LEVOTHYROXINE SODIUM
     Indication: HYPOTHYROIDISM
  5. GABAPENTIN. [Concomitant]
     Active Substance: GABAPENTIN
     Indication: HYPOAESTHESIA

REACTIONS (2)
  - Vaginal laceration [Not Recovered/Not Resolved]
  - Vulvovaginal mycotic infection [Not Recovered/Not Resolved]

NARRATIVE: CASE EVENT DATE: 2015
